FAERS Safety Report 15905809 (Version 1)
Quarter: 2019Q1

REPORT INFORMATION
  Report Type: Spontaneous
  Country: US (occurrence: US)
  Receive Date: 20190202
  Receipt Date: 20190202
  Transmission Date: 20190417
  Serious: Yes (Death)
  Sender: FDA-Public Use
  Company Number: None

PATIENT
  Age: 80 Year
  Sex: Male
  Weight: 85.5 kg

DRUGS (5)
  1. LYRICA [Suspect]
     Active Substance: PREGABALIN
     Indication: NERVE INJURY
     Dosage: ?          QUANTITY:1 CAPSULE(S);?
     Route: 048
     Dates: start: 20151221, end: 20170830
  2. METAPROLOL 50 MG 3XD [Concomitant]
  3. SINVASTATIN 20 MG 1XD [Concomitant]
  4. OHENYTONIN 100 MG 4, 2XD [Concomitant]
  5. VITAMIN B 12 2XD [Concomitant]

REACTIONS (7)
  - Decreased appetite [None]
  - Dyspnoea [None]
  - Dizziness [None]
  - Peripheral swelling [None]
  - Blood sodium decreased [None]
  - Joint swelling [None]
  - Abdominal distension [None]

NARRATIVE: CASE EVENT DATE: 20160830
